FAERS Safety Report 21311677 (Version 2)
Quarter: 2023Q4

REPORT INFORMATION
  Report Type: Report from Study
  Country: FR (occurrence: FR)
  Receive Date: 20220909
  Receipt Date: 20231130
  Transmission Date: 20240110
  Serious: Yes (Hospitalization)
  Sender: FDA-Public Use
  Company Number: FR-SA-SAC20220413000009

PATIENT
  Age: 73 Year
  Sex: Female
  Weight: 63 kg

DRUGS (5)
  1. ISATUXIMAB [Suspect]
     Active Substance: ISATUXIMAB
     Indication: Plasma cell myeloma
     Dosage: 640 MG
     Dates: start: 20220407, end: 20220407
  2. ISATUXIMAB [Suspect]
     Active Substance: ISATUXIMAB
     Dosage: 620 MG
     Dates: start: 20231026, end: 20231026
  3. LENALIDOMIDE [Suspect]
     Active Substance: LENALIDOMIDE
     Indication: Plasma cell myeloma
     Dosage: 25 MG
     Dates: start: 20220407, end: 20220407
  4. LENALIDOMIDE [Suspect]
     Active Substance: LENALIDOMIDE
     Dosage: 10 MG
     Dates: start: 20231026, end: 20231026
  5. DEXAMETHASONE [Concomitant]
     Active Substance: DEXAMETHASONE
     Indication: Plasma cell myeloma
     Dosage: 20 MG
     Dates: start: 20220407, end: 20220407

REACTIONS (2)
  - Hypoxia [Recovered/Resolved]
  - Hypoxia [Recovering/Resolving]

NARRATIVE: CASE EVENT DATE: 20220407
